FAERS Safety Report 4382196-3 (Version None)
Quarter: 2004Q2

REPORT INFORMATION
  Report Type: 
  Country: None (occurrence: None)
  Receive Date: 20040618
  Receipt Date: 20040618
  Transmission Date: 20050107
  Serious: Yes (Life-Threatening, Hospitalization)
  Sender: FDA-Public Use
  Company Number: None

PATIENT
  Sex: Male
  Weight: 42 kg

DRUGS (4)
  1. SEPTRA [Suspect]
     Indication: PNEUMONIA
     Dosage: INTRAVENOUS
     Route: 042
     Dates: start: 20040430, end: 20040525
  2. CIPRO [Suspect]
     Indication: MUCOSAL INFLAMMATION
     Dosage: ORAL
     Route: 048
     Dates: start: 20040525, end: 20040526
  3. CASPOFUNGIN [Concomitant]
  4. CLARITHROMYCIN [Concomitant]

REACTIONS (6)
  - BLOOD GLUCOSE DECREASED [None]
  - CONDITION AGGRAVATED [None]
  - LOOSE STOOLS [None]
  - MUCOSAL INFLAMMATION [None]
  - STOMATITIS [None]
  - VOMITING [None]
